FAERS Safety Report 6645343-6 (Version None)
Quarter: 2010Q1

REPORT INFORMATION
  Report Type: 
  Country: None (occurrence: None)
  Receive Date: 20100322
  Receipt Date: 20100315
  Transmission Date: 20100710
  Serious: Yes (Other)
  Sender: FDA-Public Use
  Company Number: US-ROCHE-692136

PATIENT
  Age: 53 Year
  Sex: Female
  Weight: 72.6 kg

DRUGS (11)
  1. PEGASYS [Suspect]
     Indication: HEPATITIS C
     Dosage: OTHER INDICATION: CIRRHOSIS OF LIVER;
     Route: 058
     Dates: start: 20100207
  2. RIBAVIRIN [Suspect]
     Indication: HEPATITIS C
     Dosage: OTHER INDICATION: CIRRHOSIS OF LIVER; DOSE: THREE 200 MG TAB IN AM AND 2 IN PM
     Route: 048
     Dates: start: 20100207
  3. VITAMIN B, C + D [Concomitant]
  4. MILK THISTLE [Concomitant]
  5. ENULOSE [Concomitant]
  6. SPIRONOLACTONE [Concomitant]
  7. PRILOSEC [Concomitant]
  8. FOLIC ACID [Concomitant]
  9. SEROQUEL [Concomitant]
     Dosage: DRUG REPORTED AS SEREQUOL
  10. PREMARIN [Concomitant]
  11. LIDODERM [Concomitant]

REACTIONS (5)
  - DIZZINESS [None]
  - EPISTAXIS [None]
  - NAUSEA [None]
  - SOMNOLENCE [None]
  - TREMOR [None]
